FAERS Safety Report 25673515 (Version 3)
Quarter: 2025Q3

REPORT INFORMATION
  Report Type: Report from Study
  Country: US (occurrence: US)
  Receive Date: 20250813
  Receipt Date: 20250821
  Transmission Date: 20251021
  Serious: Yes (Hospitalization, Other)
  Sender: IPSEN BIOPHARMACEUTICALS, INC.
  Company Number: US-IPSEN Group, Research and Development-2025-19651

PATIENT
  Age: 64 Year
  Sex: Male

DRUGS (1)
  1. ONIVYDE [Suspect]
     Active Substance: IRINOTECAN HYDROCHLORIDE
     Indication: Pancreatic carcinoma
     Dosage: EVERY 2 WEEKS
     Dates: start: 20250730, end: 20250730

REACTIONS (2)
  - Oesophageal haemorrhage [Recovering/Resolving]
  - Hospice care [Unknown]

NARRATIVE: CASE EVENT DATE: 20250803
